FAERS Safety Report 10351392 (Version 1)
Quarter: 2014Q3

REPORT INFORMATION
  Report Type: Spontaneous
  Country: DE (occurrence: DE)
  Receive Date: 20140730
  Receipt Date: 20140730
  Transmission Date: 20150326
  Serious: Yes (Other)
  Sender: FDA-Public Use
  Company Number: DE-BRISTOL-MYERS SQUIBB COMPANY-21222773

PATIENT
  Sex: Female

DRUGS (1)
  1. LITALIR CAPS [Suspect]
     Active Substance: HYDROXYUREA

REACTIONS (2)
  - Dementia [Not Recovered/Not Resolved]
  - Dysphagia [Not Recovered/Not Resolved]
